FAERS Safety Report 26146552 (Version 1)
Quarter: 2025Q4

REPORT INFORMATION
  Report Type: Spontaneous
  Country: US (occurrence: US)
  Receive Date: 20251211
  Receipt Date: 20251211
  Transmission Date: 20260119
  Serious: No
  Sender: FERRING
  Company Number: US-FERRINGPH-2025FE02147

PATIENT
  Sex: Female

DRUGS (2)
  1. MENOPUR [Suspect]
     Active Substance: FOLLITROPIN\LUTEINIZING HORMONE
     Indication: In vitro fertilisation
     Route: 065
  2. FOLLISTIM [Suspect]
     Active Substance: FOLLITROPIN
     Indication: Product used for unknown indication
     Route: 065

REACTIONS (1)
  - Burning sensation [Not Recovered/Not Resolved]
